FAERS Safety Report 8989594 (Version 2)
Quarter: 2013Q1

REPORT INFORMATION
  Report Type: Spontaneous
  Country: US (occurrence: US)
  Receive Date: 20121228
  Receipt Date: 20130104
  Transmission Date: 20140127
  Serious: No
  Sender: FDA-Public Use
  Company Number: US-BIOGENIDEC-2012BI063762

PATIENT
  Age: 50 Year
  Sex: Female

DRUGS (7)
  1. TYSABRI [Suspect]
     Indication: MULTIPLE SCLEROSIS
     Route: 042
     Dates: start: 20121211
  2. AVONEX [Concomitant]
     Indication: MULTIPLE SCLEROSIS
     Route: 030
  3. IBUPROFEN [Concomitant]
     Indication: BACK PAIN
  4. IBUPROFEN [Concomitant]
     Indication: LUMBAR SPINAL STENOSIS
  5. MIDRIN [Concomitant]
     Indication: BACK PAIN
  6. MIDRIN [Concomitant]
     Indication: LUMBAR SPINAL STENOSIS
  7. KLONOPIN [Concomitant]
     Indication: ANXIETY
     Dates: start: 1997

REACTIONS (10)
  - Speech disorder [Not Recovered/Not Resolved]
  - Muscle spasms [Recovered/Resolved]
  - Restlessness [Recovered/Resolved]
  - Depressed mood [Not Recovered/Not Resolved]
  - Anxiety [Recovered/Resolved]
  - Sciatica [Not Recovered/Not Resolved]
  - Pain [Not Recovered/Not Resolved]
  - Hypoaesthesia [Not Recovered/Not Resolved]
  - Fatigue [Not Recovered/Not Resolved]
  - Dizziness [Not Recovered/Not Resolved]
